FAERS Safety Report 24140714 (Version 2)
Quarter: 2024Q3

REPORT INFORMATION
  Report Type: Spontaneous
  Country: FR (occurrence: None)
  Receive Date: 20240726
  Receipt Date: 20240905
  Transmission Date: 20241016
  Serious: Yes (Hospitalization, Other)
  Sender: ASTRAZENECA
  Company Number: 2024A170192

PATIENT
  Age: 77 Year
  Sex: Female

DRUGS (11)
  1. QUETIAPINE [Suspect]
     Active Substance: QUETIAPINE
     Indication: Diffuse large B-cell lymphoma
     Dosage: ORAL, 4% 10 DROPS/D QUETIAPINE LP CNS
     Route: 048
  2. DOXORUBICIN [Suspect]
     Active Substance: DOXORUBICIN
     Indication: Diffuse large B-cell lymphoma
     Dosage: NR, CNS
     Route: 042
     Dates: start: 20230620, end: 20231114
  3. BROMAZEPAM [Suspect]
     Active Substance: BROMAZEPAM
     Indication: Diffuse large B-cell lymphoma
     Dosage: ORAL, 15MG/D BROMAZEPAM CNS,
     Route: 048
  4. CYCLOPHOSPHAMIDE [Suspect]
     Active Substance: CYCLOPHOSPHAMIDE
     Indication: Diffuse large B-cell lymphoma
     Dosage: 20/06/2023 TO 14/11/2023 CYCLOPHOSPHAMIDE CNS,INJECTABLE, DOSAGE NOT SPECIFIED,
     Route: 042
     Dates: start: 20230620, end: 20231114
  5. VINCRISTINE [Suspect]
     Active Substance: VINCRISTINE
     Indication: Diffuse large B-cell lymphoma
     Dosage: NR, VINCRISTINE (SULFATE), FROM 20/06/2023 TO14/11/2023 VINCRISTINE CNS, INJECTABLE, DOSAGE NOT S...
     Route: 042
     Dates: start: 20230620, end: 20231114
  6. RITUXIMAB [Suspect]
     Active Substance: RITUXIMAB
     Indication: Diffuse large B-cell lymphoma
     Dosage: NR, ((MAMMAL/HAMSTER/CHO CELLS)), ORAL, 1 TABLET 3 TIMES A WEEK RECENTLY INTRODUCED RITUXIMAB CNS...
     Route: 042
     Dates: start: 20230620, end: 20231114
  7. PANTOPRAZOLE [Concomitant]
     Active Substance: PANTOPRAZOLE
     Indication: Diffuse large B-cell lymphoma
     Dosage: ORAL, 75MG VALACICLOVIR CNS
     Route: 048
  8. TRIMEPRAZINE [Concomitant]
     Active Substance: TRIMEPRAZINE
     Indication: Diffuse large B-cell lymphoma
     Dosage: ORAL, 500MG 2/D THERALENE ALIMEMAZINE TARTRATE
     Route: 048
  9. BACTRIM [Concomitant]
     Active Substance: SULFAMETHOXAZOLE\TRIMETHOPRIM
     Indication: Diffuse large B-cell lymphoma
     Dosage: ORAL, 1. 5MG/D COTRIMOXAZOLE BACTRIM FORTE
     Route: 048
  10. VENLAFAXINE [Concomitant]
     Active Substance: VENLAFAXINE HYDROCHLORIDE
     Indication: Diffuse large B-cell lymphoma
  11. VALACYCLOVIR HYDROCHLORIDE [Concomitant]
     Active Substance: VALACYCLOVIR HYDROCHLORIDE
     Indication: Diffuse large B-cell lymphoma
     Dosage: ORAL, 75MG VALACICLOVIR CNS
     Route: 048

REACTIONS (5)
  - Ventricular dysfunction [Not Recovered/Not Resolved]
  - Cardiac failure [Not Recovered/Not Resolved]
  - Hyperkalaemia [Unknown]
  - Hyponatraemia [Unknown]
  - Off label use [Unknown]

NARRATIVE: CASE EVENT DATE: 20231226
